FAERS Safety Report 8851659 (Version 1)
Quarter: 2012Q4

REPORT INFORMATION
  Report Type: Spontaneous
  Country: US (occurrence: None)
  Receive Date: 20121018
  Receipt Date: 20121018
  Transmission Date: 20130627
  Serious: Yes (Life-Threatening, Congenital Anomaly, Other)
  Sender: FDA-Public Use
  Company Number: None

PATIENT
  Age: 40 Year
  Sex: Male
  Weight: 95.26 kg

DRUGS (5)
  1. ZOLOFT [Suspect]
     Indication: POST-TRAUMATIC STRESS DISORDER
     Route: 048
     Dates: start: 20120901, end: 20121008
  2. ZOLOFT [Suspect]
     Indication: DEPRESSION
     Route: 048
     Dates: start: 20120901, end: 20121008
  3. ZOLOFT [Suspect]
     Indication: SOCIAL ANXIETY DISORDER
     Route: 048
     Dates: start: 20120901, end: 20121008
  4. XANAX [Concomitant]
  5. VALIUM [Concomitant]

REACTIONS (13)
  - Serotonin syndrome [None]
  - Derealisation [None]
  - Aggression [None]
  - Suicidal ideation [None]
  - Aphagia [None]
  - Insomnia [None]
  - Urinary retention [None]
  - Refusal of treatment by patient [None]
  - Hallucinations, mixed [None]
  - Physical assault [None]
  - Depressed mood [None]
  - Legal problem [None]
  - Amnesia [None]
